FAERS Safety Report 21950044 (Version 1)
Quarter: 2023Q1

REPORT INFORMATION
  Report Type: Spontaneous
  Country: US (occurrence: US)
  Receive Date: 20230203
  Receipt Date: 20230203
  Transmission Date: 20230418
  Serious: Yes (Death, Life-Threatening, Other)
  Sender: FDA-Public Use
  Company Number: US-BRACCO-2023US00298

PATIENT
  Age: 66 Year
  Sex: Female

DRUGS (4)
  1. LUMASON [Suspect]
     Active Substance: SULFUR HEXAFLUORIDE
     Indication: Echocardiogram
     Dosage: 2.5
     Route: 042
     Dates: start: 20230125, end: 20230125
  2. LUMASON [Suspect]
     Active Substance: SULFUR HEXAFLUORIDE
     Indication: Echocardiogram
     Dosage: 2.5
     Route: 042
     Dates: start: 20230125, end: 20230125
  3. LUMASON [Suspect]
     Active Substance: SULFUR HEXAFLUORIDE
     Indication: Echocardiogram
     Dosage: 2.5
     Route: 042
     Dates: start: 20230125, end: 20230125
  4. SODIUM CHLORIDE [Concomitant]
     Active Substance: SODIUM CHLORIDE
     Dosage: 5ML SINGLE
     Route: 042
     Dates: start: 20230125, end: 20230125

REACTIONS (7)
  - Cardio-respiratory arrest [Fatal]
  - Unresponsive to stimuli [Fatal]
  - Taste disorder [Fatal]
  - Pruritus [Fatal]
  - Nausea [Fatal]
  - Hyperhidrosis [Fatal]
  - Dyspnoea [Fatal]

NARRATIVE: CASE EVENT DATE: 20230125
